FAERS Safety Report 5085754-6 (Version None)
Quarter: 2006Q3

REPORT INFORMATION
  Report Type: 
  Country: None (occurrence: None)
  Receive Date: 20060822
  Receipt Date: 20060817
  Transmission Date: 20061208
  Serious: Yes (Other)
  Sender: FDA-Public Use
  Company Number: US-BRISTOL-MYERS SQUIBB COMPANY-13481155

PATIENT
  Age: 44 Year
  Sex: Male
  Weight: 77 kg

DRUGS (3)
  1. SUSTIVA [Suspect]
     Indication: HIV INFECTION
  2. VORICONAZOLE [Concomitant]
  3. DIFLUCAN [Concomitant]

REACTIONS (3)
  - HYPOAESTHESIA [None]
  - RASH PRURITIC [None]
  - SWELLING [None]
